FAERS Safety Report 6940263-1 (Version None)
Quarter: 2010Q3

REPORT INFORMATION
  Report Type: 
  Country: None (occurrence: None)
  Receive Date: 20100825
  Receipt Date: 20100811
  Transmission Date: 20110219
  Serious: Yes (Hospitalization)
  Sender: FDA-Public Use
  Company Number: PHHY2010ES52578

PATIENT
  Age: 86 Year
  Sex: Female

DRUGS (11)
  1. DIOVAN HCT [Suspect]
     Indication: HYPERTENSION
     Dosage: 250 MG
     Route: 048
     Dates: start: 20080204, end: 20100626
  2. SIMVASTATIN [Concomitant]
  3. DIGOXIN [Concomitant]
     Indication: ATRIAL FIBRILLATION
     Dosage: UNK
     Dates: start: 20030130
  4. METFORMIN [Concomitant]
     Indication: DIABETES MELLITUS
     Dosage: UNK
     Dates: start: 20060626
  5. DIOVAN [Concomitant]
     Indication: HYPERTENSION
     Dosage: 80 MG, DAILY
     Route: 048
     Dates: start: 20100201
  6. HEMOVAS [Concomitant]
     Indication: INTERMITTENT CLAUDICATION
     Dosage: UNK
     Dates: start: 20020108
  7. HYDREA [Concomitant]
     Indication: THROMBOCYTOSIS
     Dosage: UNK
     Dates: start: 20070101
  8. KEPPRA [Concomitant]
     Indication: EPILEPSY
     Dosage: 500 MG
     Route: 048
     Dates: start: 20060101
  9. MASDIL - SLOW RELEASE [Concomitant]
     Indication: HYPERTENSION
     Dosage: UNK
     Dates: start: 20060626
  10. SINTROM [Concomitant]
     Indication: ATRIAL FIBRILLATION
     Dosage: UNK
     Dates: start: 20020108
  11. ZANTAC [Concomitant]
     Dosage: 300 MG
     Dates: start: 20021029

REACTIONS (2)
  - FALL [None]
  - HYPONATRAEMIA [None]
